FAERS Safety Report 22358124 (Version 5)
Quarter: 2024Q4

REPORT INFORMATION
  Report Type: Spontaneous
  Country: JP (occurrence: JP)
  Receive Date: 20230524
  Receipt Date: 20241008
  Transmission Date: 20250115
  Serious: Yes (Death, Life-Threatening, Hospitalization, Other)
  Sender: BRISTOL MYERS SQUIBB
  Company Number: JP-ONO-2023JP012911

PATIENT
  Age: 71 Year
  Sex: Male
  Weight: 51.7 kg

DRUGS (2)
  1. OPDIVO [Suspect]
     Active Substance: NIVOLUMAB
     Indication: Gastric cancer
     Route: 041
     Dates: start: 20230214, end: 20230228
  2. COMIRNATY [Concomitant]
     Indication: Product used for unknown indication
     Dates: start: 202302, end: 202302

REACTIONS (6)
  - Cardiomyopathy [Fatal]
  - Immune-mediated myositis [Not Recovered/Not Resolved]
  - Diplopia [Unknown]
  - Myocardial infarction [Unknown]
  - Painful respiration [Unknown]
  - Immune-mediated myocarditis [Fatal]

NARRATIVE: CASE EVENT DATE: 20230301
